FAERS Safety Report 12310431 (Version 4)
Quarter: 2016Q3

REPORT INFORMATION
  Report Type: Spontaneous
  Country: NO (occurrence: NO)
  Receive Date: 20160427
  Receipt Date: 20160906
  Transmission Date: 20161109
  Serious: Yes (Death)
  Sender: FDA-Public Use
  Company Number: NO-PFIZER INC-2016228879

PATIENT
  Age: 47 Year
  Sex: Female

DRUGS (9)
  1. VENLAFAXINE HCL [Suspect]
     Active Substance: VENLAFAXINE HYDROCHLORIDE
     Dosage: UNK
  2. LAMOTRIGINE. [Suspect]
     Active Substance: LAMOTRIGINE
     Dosage: UNK
  3. THEOPHYLLINE [Suspect]
     Active Substance: THEOPHYLLINE ANHYDROUS
     Dosage: UNK
  4. PARACETAMOL [Suspect]
     Active Substance: ACETAMINOPHEN
     Dosage: UNK
  5. METOCLOPRAMIDE. [Suspect]
     Active Substance: METOCLOPRAMIDE
     Dosage: UNK
  6. CODEINE [Suspect]
     Active Substance: CODEINE
     Dosage: UNK
  7. DIAZEPAM. [Suspect]
     Active Substance: DIAZEPAM
     Dosage: UNK
  8. OXAZEPAM. [Suspect]
     Active Substance: OXAZEPAM
     Dosage: UNK
  9. DESMETHYLDIAZEPAM [Suspect]
     Active Substance: NORDAZEPAM
     Dosage: UNK

REACTIONS (1)
  - Toxicity to various agents [Fatal]
